FAERS Safety Report 21286049 (Version 1)
Quarter: 2022Q3

REPORT INFORMATION
  Report Type: Spontaneous
  Country: GB (occurrence: GB)
  Receive Date: 20220902
  Receipt Date: 20220902
  Transmission Date: 20221026
  Serious: Yes (Other)
  Sender: FDA-Public Use
  Company Number: None

PATIENT
  Age: 54 Year
  Sex: Female

DRUGS (2)
  1. PAXLOVID [Suspect]
     Active Substance: NIRMATRELVIR\RITONAVIR
     Indication: COVID-19 treatment
     Dosage: UNK
     Dates: start: 20220828, end: 20220829
  2. RITONAVIR [Suspect]
     Active Substance: RITONAVIR
     Indication: Coronavirus infection
     Dosage: 100 MG
     Dates: start: 20220828, end: 20220829

REACTIONS (3)
  - Malaise [Recovered/Resolved]
  - Abdominal pain upper [Unknown]
  - Hypoaesthesia [Unknown]

NARRATIVE: CASE EVENT DATE: 20220828
